FAERS Safety Report 16339200 (Version 2)
Quarter: 2019Q2

REPORT INFORMATION
  Report Type: Spontaneous
  Country: ES (occurrence: ES)
  Receive Date: 20190521
  Receipt Date: 20190528
  Transmission Date: 20190711
  Serious: Yes (Other)
  Sender: FDA-Public Use
  Company Number: ES-SHIRE-ES201915939

PATIENT

DRUGS (6)
  1. HUMAN NORMAL IMMUNOGLOBULIN [Suspect]
     Active Substance: HUMAN IMMUNOGLOBULIN G
     Indication: HAEMORRHAGE
     Dosage: UNK
     Route: 065
  2. PREDNISONE. [Suspect]
     Active Substance: PREDNISONE
     Indication: IMMUNE THROMBOCYTOPENIC PURPURA
  3. RITUXIMAB. [Suspect]
     Active Substance: RITUXIMAB
     Indication: IMMUNE THROMBOCYTOPENIC PURPURA
     Dosage: UNK
     Route: 065
  4. RITUXIMAB. [Suspect]
     Active Substance: RITUXIMAB
     Indication: HAEMORRHAGE
  5. PREDNISONE. [Suspect]
     Active Substance: PREDNISONE
     Indication: HAEMORRHAGE
     Dosage: UNK
     Route: 065
  6. HUMAN NORMAL IMMUNOGLOBULIN [Suspect]
     Active Substance: HUMAN IMMUNOGLOBULIN G
     Indication: IMMUNE THROMBOCYTOPENIC PURPURA

REACTIONS (5)
  - Therapeutic product effect incomplete [Unknown]
  - Thrombocytopenia [Unknown]
  - Mucocutaneous haemorrhage [Recovered/Resolved]
  - Product use in unapproved indication [Unknown]
  - Skin haemorrhage [Unknown]
